FAERS Safety Report 15129849 (Version 2)
Quarter: 2018Q3

REPORT INFORMATION
  Report Type: Spontaneous
  Country: GB (occurrence: GB)
  Receive Date: 20180711
  Receipt Date: 20180914
  Transmission Date: 20181010
  Serious: Yes (Death, Hospitalization, Other)
  Sender: FDA-Public Use
  Company Number: GB-SAKK-2018SA181692AA

PATIENT
  Age: 34 Year
  Sex: Female

DRUGS (15)
  1. TRAMADOL. [Concomitant]
     Active Substance: TRAMADOL
  2. LORAZEPAM. [Concomitant]
     Active Substance: LORAZEPAM
  3. METOCLOPRAMIDE HYDROCHLORIDE. [Concomitant]
     Active Substance: METOCLOPRAMIDE HYDROCHLORIDE
  4. MIRABEGRON [Concomitant]
     Active Substance: MIRABEGRON
  5. PROMETHAZINE [Concomitant]
     Active Substance: PROMETHAZINE\PROMETHAZINE HYDROCHLORIDE
  6. CARBAMAZEPINE. [Concomitant]
     Active Substance: CARBAMAZEPINE
  7. OMEPRAZOLE. [Concomitant]
     Active Substance: OMEPRAZOLE
  8. PREGABALIN. [Concomitant]
     Active Substance: PREGABALIN
  9. LEMTRADA [Suspect]
     Active Substance: ALEMTUZUMAB
     Indication: MULTIPLE SCLEROSIS
     Route: 041
     Dates: start: 201702
  10. BACLOFEN. [Concomitant]
     Active Substance: BACLOFEN
  11. ORLISTAT. [Concomitant]
     Active Substance: ORLISTAT
  12. AMANTADINE. [Concomitant]
     Active Substance: AMANTADINE HYDROCHLORIDE
  13. CLONAZEPAM. [Concomitant]
     Active Substance: CLONAZEPAM
  14. ZOPICLONE [Concomitant]
     Active Substance: ZOPICLONE
  15. SERTRALINE [Concomitant]
     Active Substance: SERTRALINE HYDROCHLORIDE

REACTIONS (8)
  - Pneumoperitoneum [Fatal]
  - Hepatic encephalopathy [Fatal]
  - Condition aggravated [Fatal]
  - Peritonitis [Fatal]
  - Large intestine perforation [Fatal]
  - Jaundice hepatocellular [Fatal]
  - Hepatic failure [Fatal]
  - Autoimmune hepatitis [Fatal]

NARRATIVE: CASE EVENT DATE: 2018
